FAERS Safety Report 7790728-8 (Version None)
Quarter: 2011Q3

REPORT INFORMATION
  Report Type: 
  Country: None (occurrence: None)
  Receive Date: 20110930
  Receipt Date: 20090520
  Transmission Date: 20111222
  Serious: No
  Sender: FDA-Public Use
  Company Number: PHHY2009TW61070

PATIENT

DRUGS (1)
  1. GLEEVEC [Suspect]
     Indication: CHRONIC MYELOID LEUKAEMIA
     Dosage: 400 MG, UNK
     Route: 048

REACTIONS (9)
  - DEPRESSION [None]
  - PRURITUS GENITAL [None]
  - OCULAR HYPERAEMIA [None]
  - ASTHENIA [None]
  - EYE DISCHARGE [None]
  - MALAISE [None]
  - PANIC ATTACK [None]
  - EYE INFLAMMATION [None]
  - EYE DISORDER [None]
